FAERS Safety Report 15266105 (Version 1)
Quarter: 2018Q3

REPORT INFORMATION
  Report Type: Spontaneous
  Country: US (occurrence: US)
  Receive Date: 20180810
  Receipt Date: 20180810
  Transmission Date: 20181010
  Serious: Yes (Hospitalization)
  Sender: FDA-Public Use
  Company Number: US-MYLANLABS-2018M1060367

PATIENT
  Age: 79 Year
  Sex: Female

DRUGS (1)
  1. TRIAMCINOLONE [Suspect]
     Active Substance: TRIAMCINOLONE
     Indication: PRODUCT USED FOR UNKNOWN INDICATION
     Dosage: RECEIVED 3 INJECTIONS 5 MONTHS PRIOR TO THE PRESENTATION
     Route: 014

REACTIONS (3)
  - Hypothalamic pituitary adrenal axis suppression [Recovering/Resolving]
  - Cardiomegaly [Unknown]
  - Adrenal insufficiency [Recovering/Resolving]
